FAERS Safety Report 15850378 (Version 2)
Quarter: 2019Q1

REPORT INFORMATION
  Report Type: Spontaneous
  Country: FR (occurrence: FR)
  Receive Date: 20190121
  Receipt Date: 20190212
  Transmission Date: 20190417
  Serious: Yes (Other)
  Sender: FDA-Public Use
  Company Number: FR-JNJFOC-20190120992

PATIENT
  Age: 72 Year
  Sex: Male

DRUGS (1)
  1. REMINYL [Suspect]
     Active Substance: GALANTAMINE
     Indication: DEMENTIA
     Route: 062
     Dates: start: 201303, end: 201808

REACTIONS (4)
  - Condition aggravated [Not Recovered/Not Resolved]
  - Off label use [Recovered/Resolved]
  - Incorrect route of product administration [Recovered/Resolved]
  - Dementia [Not Recovered/Not Resolved]

NARRATIVE: CASE EVENT DATE: 201303
